FAERS Safety Report 7938334-6 (Version None)
Quarter: 2011Q4

REPORT INFORMATION
  Report Type: 
  Country: None (occurrence: None)
  Receive Date: 20111123
  Receipt Date: 20111121
  Transmission Date: 20120403
  Serious: Yes (Hospitalization, Other)
  Sender: FDA-Public Use
  Company Number: US-BAYER-200833854NA

PATIENT
  Age: 50 Year
  Sex: Female

DRUGS (3)
  1. BETASERON [Suspect]
     Route: 058
     Dates: start: 20070104, end: 20070115
  2. BETASERON [Suspect]
     Indication: RELAPSING-REMITTING MULTIPLE SCLEROSIS
     Dosage: 8 MIU, QOD
     Route: 058
     Dates: start: 20070130, end: 20111007
  3. MAGNESIUM HYDROXIDE TAB [Concomitant]
     Indication: CONSTIPATION
     Route: 048

REACTIONS (31)
  - DEPRESSION [None]
  - PAIN [None]
  - COUGH [None]
  - EMOTIONAL DISORDER [None]
  - HEADACHE [None]
  - SUICIDAL IDEATION [None]
  - MULTIPLE SCLEROSIS [None]
  - PLATELET COUNT DECREASED [None]
  - THYROID CANCER [None]
  - HYPERTHYROIDISM [None]
  - TEARFULNESS [None]
  - CARDIOMEGALY [None]
  - INJECTION SITE ERYTHEMA [None]
  - INJECTION SITE PAIN [None]
  - PYREXIA [None]
  - SINUS DISORDER [None]
  - CONSTIPATION [None]
  - FLATULENCE [None]
  - CHEST PAIN [None]
  - BLOOD COUNT ABNORMAL [None]
  - COCCYDYNIA [None]
  - DIZZINESS [None]
  - PERONEAL NERVE PALSY [None]
  - SENSATION OF HEAVINESS [None]
  - LIVER FUNCTION TEST ABNORMAL [None]
  - INJECTION SITE HAEMATOMA [None]
  - BACK PAIN [None]
  - FEELING ABNORMAL [None]
  - VISION BLURRED [None]
  - FATIGUE [None]
  - MUSCLE SPASMS [None]
